FAERS Safety Report 23828561 (Version 1)
Quarter: 2024Q2

REPORT INFORMATION
  Report Type: Spontaneous
  Country: US (occurrence: US)
  Receive Date: 20240508
  Receipt Date: 20240508
  Transmission Date: 20240716
  Serious: No
  Sender: FDA-Public Use
  Company Number: US-AUROBINDO-AUR-APL-2024-021332

PATIENT
  Sex: Female

DRUGS (4)
  1. HYDROCORTISONE [Suspect]
     Active Substance: HYDROCORTISONE
     Indication: Dermatitis diaper
     Dosage: UNK
     Route: 065
  2. CLOTRIMAZOLE [Suspect]
     Active Substance: CLOTRIMAZOLE
     Indication: Dermatitis diaper
     Dosage: UNK
     Route: 065
  3. ZINC OXIDE [Suspect]
     Active Substance: ZINC OXIDE
     Indication: Dermatitis diaper
     Dosage: UNK
     Route: 065
  4. AQUAPHOR [Suspect]
     Active Substance: PETROLATUM
     Indication: Dermatitis diaper
     Dosage: UNK
     Route: 065

REACTIONS (1)
  - Drug ineffective [Unknown]
